FAERS Safety Report 9114672 (Version 1)
Quarter: 2013Q1

REPORT INFORMATION
  Report Type: Spontaneous
  Country: US (occurrence: US)
  Receive Date: 20130208
  Receipt Date: 20130208
  Transmission Date: 20140127
  Serious: Yes (Death, Other)
  Sender: FDA-Public Use
  Company Number: US-BAXTER-2013BAX004318

PATIENT
  Sex: Female

DRUGS (1)
  1. DIANEAL LOW CALCIUM [Suspect]
     Indication: PERITONEAL DIALYSIS
     Route: 033
     Dates: end: 20130125

REACTIONS (4)
  - Sepsis [Fatal]
  - Pseudomonas infection [Unknown]
  - Tracheostomy infection [Unknown]
  - Multi-organ failure [Unknown]
